FAERS Safety Report 16105686 (Version 1)
Quarter: 2019Q1

REPORT INFORMATION
  Report Type: Spontaneous
  Country: US (occurrence: US)
  Receive Date: 20190220
  Receipt Date: 20190220
  Transmission Date: 20190418
  Serious: No
  Sender: FDA-Public Use
  Company Number: None

PATIENT
  Age: 56 Year
  Sex: Male

DRUGS (1)
  1. OCTREOTIDE 200MCG/ML MDV 5ML [Suspect]
     Active Substance: OCTREOTIDE
     Route: 058
     Dates: start: 201902

REACTIONS (1)
  - Off label use [None]

NARRATIVE: CASE EVENT DATE: 20190220
